FAERS Safety Report 13405704 (Version 2)
Quarter: 2017Q2

REPORT INFORMATION
  Report Type: Spontaneous
  Country: US (occurrence: US)
  Receive Date: 20170405
  Receipt Date: 20170427
  Transmission Date: 20170830
  Serious: No
  Sender: FDA-Public Use
  Company Number: US-VIFOR (INTERNATIONAL) INC.-VIT-2017-03080

PATIENT
  Age: 67 Year
  Sex: Female
  Weight: 113 kg

DRUGS (2)
  1. MIRCERA [Suspect]
     Active Substance: METHOXY POLYETHYLENE GLYCOL-EPOETIN BETA
     Indication: PRODUCT USED FOR UNKNOWN INDICATION
  2. HEPARIN [Concomitant]
     Active Substance: HEPARIN SODIUM

REACTIONS (4)
  - Pharyngeal oedema [Unknown]
  - Swollen tongue [Unknown]
  - Throat irritation [Unknown]
  - Tongue pruritus [Unknown]

NARRATIVE: CASE EVENT DATE: 20170310
